FAERS Safety Report 7303918-5 (Version None)
Quarter: 2011Q1

REPORT INFORMATION
  Report Type: 
  Country: None (occurrence: None)
  Receive Date: 20110221
  Receipt Date: 20110125
  Transmission Date: 20110831
  Serious: No
  Sender: FDA-Public Use
  Company Number: US-BAYER-2011-009781

PATIENT
  Sex: Male
  Weight: 81.633 kg

DRUGS (3)
  1. ULTRAVIST 150 [Suspect]
     Indication: COMPUTERISED TOMOGRAM ABDOMEN
     Dosage: 80 ML, ONCE
     Route: 042
     Dates: start: 20110125, end: 20110125
  2. ULTRAVIST 150 [Suspect]
     Dosage: UNK
     Route: 048
     Dates: start: 20110125, end: 20110125
  3. ULTRAVIST 150 [Suspect]
     Dosage: UNK
     Route: 048
     Dates: start: 20110125, end: 20110125

REACTIONS (2)
  - EAR PRURITUS [None]
  - URTICARIA [None]
